FAERS Safety Report 25425722 (Version 1)
Quarter: 2025Q2

REPORT INFORMATION
  Report Type: Spontaneous
  Country: GB (occurrence: GB)
  Receive Date: 20250611
  Receipt Date: 20250611
  Transmission Date: 20250717
  Serious: Yes (Other)
  Sender: ALKEM
  Company Number: None

PATIENT
  Sex: Male

DRUGS (2)
  1. VARENICLINE [Suspect]
     Active Substance: VARENICLINE
     Indication: Product used for unknown indication
     Route: 065
  2. VARENICLINE [Suspect]
     Active Substance: VARENICLINE
     Dosage: 1 MILLIGRAM, BID (INCREASED DOSE)
     Route: 048

REACTIONS (2)
  - Mood altered [Recovered/Resolved]
  - Brain fog [Unknown]
